FAERS Safety Report 21844485 (Version 1)
Quarter: 2023Q1

REPORT INFORMATION
  Report Type: Spontaneous
  Country: FR (occurrence: FR)
  Receive Date: 20230110
  Receipt Date: 20230110
  Transmission Date: 20230417
  Serious: Yes (Other)
  Sender: FDA-Public Use
  Company Number: FR-BAXTER-2022BAX026599

PATIENT
  Age: 4 Month
  Sex: Male

DRUGS (13)
  1. SMOFLIPID [Suspect]
     Active Substance: FISH OIL\MEDIUM-CHAIN TRIGLYCERIDES\OLIVE OIL\SOYBEAN OIL
     Indication: Parenteral nutrition
     Dosage: UNK
     Dates: start: 20221205, end: 20221206
  2. VITAMINS [Suspect]
     Active Substance: VITAMINS
     Indication: Parenteral nutrition
     Dosage: UNK
     Dates: start: 20221205, end: 20221206
  3. ERGOCALCIFEROL\PHYTONADIONE\TOCOPHEROL\VITAMIN A PALMITATE [Suspect]
     Active Substance: ERGOCALCIFEROL\PHYTONADIONE\TOCOPHEROL\VITAMIN A PALMITATE
     Indication: Parenteral nutrition
     Dosage: UNK
     Dates: start: 20221205, end: 20221206
  4. MINERALS [Suspect]
     Active Substance: MINERALS
     Indication: Parenteral nutrition
     Dosage: PEDIATRIC OLIGOELEMETRIC (OE-PED)
     Dates: start: 20221205, end: 20221206
  5. WATER FOR INJECTION [Suspect]
     Active Substance: WATER
     Indication: Parenteral nutrition
     Dosage: UNK
     Dates: start: 20221205, end: 20221206
  6. MAGNESIUM SULFATE [Suspect]
     Active Substance: MAGNESIUM SULFATE
     Indication: Parenteral nutrition
     Dosage: UNK
     Dates: start: 20221205, end: 20221206
  7. PRIMENE [Suspect]
     Active Substance: ALANINE\ARGININE\ASPARTIC ACID\CYSTEINE\GLUTAMIC ACID\GLYCINE\HISTIDINE\ISOLEUCINE\LEUCINE\LYSINE\ME
     Indication: Parenteral nutrition
     Dosage: UNK
     Dates: start: 20221205, end: 20221206
  8. PHOCYTAN [Suspect]
     Active Substance: .ALPHA.-GLUCOSE-1-PHOSPHATE
     Indication: Parenteral nutrition
     Dosage: UNK
     Dates: start: 20221205, end: 20221206
  9. DEXTROSE [Suspect]
     Active Substance: DEXTROSE
     Indication: Parenteral nutrition
     Dosage: UNK
     Dates: start: 20221205, end: 20221206
  10. CALCIUM GLUCONATE [Suspect]
     Active Substance: CALCIUM GLUCONATE
     Indication: Parenteral nutrition
     Dosage: UNK
     Dates: start: 20221205, end: 20221206
  11. SODIUM LACTATE [Suspect]
     Active Substance: SODIUM LACTATE
     Indication: Parenteral nutrition
     Dosage: UNK
     Dates: start: 20221205, end: 20221206
  12. SODIUM CHLORIDE [Suspect]
     Active Substance: SODIUM CHLORIDE
     Indication: Parenteral nutrition
     Dosage: UNK
     Dates: start: 20221205, end: 20221206
  13. POTASSIUM CHLORIDE [Suspect]
     Active Substance: POTASSIUM CHLORIDE
     Indication: Parenteral nutrition
     Dosage: UNK
     Dates: start: 20221205, end: 20221206

REACTIONS (1)
  - Hypoglycaemia [Recovered/Resolved]

NARRATIVE: CASE EVENT DATE: 20221206
